FAERS Safety Report 25763885 (Version 1)
Quarter: 2025Q3

REPORT INFORMATION
  Report Type: Spontaneous
  Country: US (occurrence: US)
  Receive Date: 20250905
  Receipt Date: 20250905
  Transmission Date: 20251020
  Serious: No
  Sender: DOMPE FARMACEUTICI
  Company Number: US-FARMAPROD-202411-3866

PATIENT
  Sex: Male

DRUGS (11)
  1. OXERVATE [Suspect]
     Active Substance: CENEGERMIN-BKBJ
     Indication: Neurotrophic keratopathy
     Route: 047
     Dates: start: 20241102
  2. PREDNISOLONE-NEPAFENAC [Concomitant]
  3. CARBOXYMETHYLCELLULOSE SODIUM [Concomitant]
     Active Substance: CARBOXYMETHYLCELLULOSE SODIUM
  4. CYCLOSPORINE [Concomitant]
     Active Substance: CYCLOSPORINE
  5. LATANOPROST [Concomitant]
     Active Substance: LATANOPROST
  6. BRIMONIDINE TARTRATE\DORZOLAMIDE HYDROCHLORIDE [Concomitant]
     Active Substance: BRIMONIDINE TARTRATE\DORZOLAMIDE HYDROCHLORIDE
  7. ELIQUIS [Concomitant]
     Active Substance: APIXABAN
  8. LEVOTHYROXINE SODIUM [Concomitant]
     Active Substance: LEVOTHYROXINE SODIUM
  9. ALLOPURINOL [Concomitant]
     Active Substance: ALLOPURINOL
  10. FUROSEMIDE [Concomitant]
     Active Substance: FUROSEMIDE
  11. METOPROLOL SUCCINATE [Concomitant]
     Active Substance: METOPROLOL SUCCINATE

REACTIONS (1)
  - Wrong technique in product usage process [Unknown]
